FAERS Safety Report 23836838 (Version 2)
Quarter: 2024Q2

REPORT INFORMATION
  Report Type: Report from Study
  Country: US (occurrence: US)
  Receive Date: 20240509
  Receipt Date: 20240531
  Transmission Date: 20240716
  Serious: Yes (Other)
  Sender: FDA-Public Use
  Company Number: US-MYLANLABS-2024M1040807

PATIENT
  Age: 75 Year
  Sex: Male

DRUGS (15)
  1. AMLODIPINE [Interacting]
     Active Substance: AMLODIPINE BESYLATE
     Indication: Product used for unknown indication
     Dosage: 5 MILLIGRAM
     Route: 065
  2. XTANDI [Interacting]
     Active Substance: ENZALUTAMIDE
     Indication: Prostate cancer
     Dosage: 160 MILLIGRAM, QD  (40 MG X 4 TABLETS)
     Route: 048
     Dates: start: 20230713
  3. XTANDI [Interacting]
     Active Substance: ENZALUTAMIDE
     Dosage: 40 MILLIGRAM, QID (STRENGTH: 40 MG)
     Route: 048
     Dates: start: 20230726
  4. XTANDI [Interacting]
     Active Substance: ENZALUTAMIDE
     Dosage: 80 MILLIGRAM, QD
     Route: 048
     Dates: start: 20230731
  5. ZOLPIDEM [Interacting]
     Active Substance: ZOLPIDEM TARTRATE
     Indication: Product used for unknown indication
     Dosage: 10 MILLIGRAM
     Route: 065
  6. ELIGARD [Concomitant]
     Active Substance: LEUPROLIDE ACETATE
     Dosage: UNK
     Route: 065
  7. ALBUTEROL SULFATE [Concomitant]
     Active Substance: ALBUTEROL SULFATE
     Dosage: UNK
     Route: 065
  8. ALLOPURINOL [Concomitant]
     Active Substance: ALLOPURINOL
     Dosage: UNK
     Route: 065
  9. BICALUTAMIDE [Concomitant]
     Active Substance: BICALUTAMIDE
     Dosage: UNK
     Route: 065
  10. CALCIUM CITRATE\CHOLECALCIFEROL [Concomitant]
     Active Substance: CALCIUM CITRATE\CHOLECALCIFEROL
     Dosage: UNK
     Route: 065
  11. GABAPENTIN [Concomitant]
     Active Substance: GABAPENTIN
     Dosage: UNK
     Route: 065
  12. HYDROCHLOROTHIAZIDE [Concomitant]
     Active Substance: HYDROCHLOROTHIAZIDE
     Dosage: UNK
     Route: 065
  13. PREGABALIN [Concomitant]
     Active Substance: PREGABALIN
     Dosage: UNK
     Route: 065
  14. SPIRONOLACTONE [Concomitant]
     Active Substance: SPIRONOLACTONE
     Dosage: UNK
     Route: 065
  15. AMLODIPINE BESYLATE [Concomitant]
     Active Substance: AMLODIPINE BESYLATE
     Dosage: UNK
     Route: 065

REACTIONS (15)
  - Pain [Not Recovered/Not Resolved]
  - Memory impairment [Not Recovered/Not Resolved]
  - Back pain [Not Recovered/Not Resolved]
  - Fatigue [Not Recovered/Not Resolved]
  - Constipation [Recovering/Resolving]
  - Neck pain [Not Recovered/Not Resolved]
  - Hot flush [Recovering/Resolving]
  - Feeling abnormal [Unknown]
  - Malaise [Not Recovered/Not Resolved]
  - Pollakiuria [Unknown]
  - Somnolence [Unknown]
  - Vision blurred [Recovering/Resolving]
  - Arthralgia [Unknown]
  - Drug interaction [Unknown]
  - Product use issue [Unknown]

NARRATIVE: CASE EVENT DATE: 20230726
